FAERS Safety Report 25567136 (Version 2)
Quarter: 2025Q3

REPORT INFORMATION
  Report Type: Report from Study
  Country: EU (occurrence: EU)
  Receive Date: 20250716
  Receipt Date: 20250723
  Transmission Date: 20251020
  Serious: Yes (Other)
  Sender: MYLAN
  Company Number: EU-MYLANLABS-2025M1057982

PATIENT
  Age: 60 Year
  Sex: Female

DRUGS (20)
  1. REMIFENTANIL [Interacting]
     Active Substance: REMIFENTANIL
     Indication: Anaesthesia
  2. REMIFENTANIL [Interacting]
     Active Substance: REMIFENTANIL
     Route: 042
  3. REMIFENTANIL [Interacting]
     Active Substance: REMIFENTANIL
     Route: 042
  4. REMIFENTANIL [Interacting]
     Active Substance: REMIFENTANIL
  5. CISATRACURIUM [Interacting]
     Active Substance: CISATRACURIUM
     Indication: Anaesthesia
  6. CISATRACURIUM [Interacting]
     Active Substance: CISATRACURIUM
     Route: 042
  7. CISATRACURIUM [Interacting]
     Active Substance: CISATRACURIUM
     Route: 042
  8. CISATRACURIUM [Interacting]
     Active Substance: CISATRACURIUM
  9. AMITRIPTYLINE [Interacting]
     Active Substance: AMITRIPTYLINE
     Indication: Arthralgia
  10. AMITRIPTYLINE [Interacting]
     Active Substance: AMITRIPTYLINE
     Route: 065
  11. AMITRIPTYLINE [Interacting]
     Active Substance: AMITRIPTYLINE
     Route: 065
  12. AMITRIPTYLINE [Interacting]
     Active Substance: AMITRIPTYLINE
  13. PROPOFOL [Interacting]
     Active Substance: PROPOFOL
     Indication: Anaesthesia
  14. PROPOFOL [Interacting]
     Active Substance: PROPOFOL
     Route: 042
  15. PROPOFOL [Interacting]
     Active Substance: PROPOFOL
     Route: 042
  16. PROPOFOL [Interacting]
     Active Substance: PROPOFOL
  17. NEOSTIGMINE [Concomitant]
     Active Substance: NEOSTIGMINE
     Indication: Product used for unknown indication
  18. NEOSTIGMINE [Concomitant]
     Active Substance: NEOSTIGMINE
     Route: 065
  19. NEOSTIGMINE [Concomitant]
     Active Substance: NEOSTIGMINE
     Route: 065
  20. NEOSTIGMINE [Concomitant]
     Active Substance: NEOSTIGMINE

REACTIONS (2)
  - Drug interaction [Unknown]
  - Procedural hypotension [Unknown]
